FAERS Safety Report 5449270-1 (Version None)
Quarter: 2007Q3

REPORT INFORMATION
  Report Type: 
  Country: None (occurrence: None)
  Receive Date: 20070911
  Receipt Date: 20070810
  Transmission Date: 20080115
  Serious: Yes (Other)
  Sender: FDA-Public Use
  Company Number: FR-PFIZER INC-2007023948

PATIENT
  Sex: Female

DRUGS (4)
  1. SALAZOPYRINE [Suspect]
     Indication: RHEUMATOID ARTHRITIS
  2. SOLU-MEDROL [Concomitant]
  3. DESLORATADINE [Concomitant]
  4. CELESTAMINE [Concomitant]

REACTIONS (8)
  - ANGIOEDEMA [None]
  - ASTHMA [None]
  - DIPLOPIA [None]
  - INTENTIONAL DRUG MISUSE [None]
  - STRABISMUS [None]
  - UTERINE HAEMORRHAGE [None]
  - VAGINAL STRICTURE [None]
  - VISUAL ACUITY REDUCED [None]
